FAERS Safety Report 7511374-7 (Version None)
Quarter: 2011Q2

REPORT INFORMATION
  Report Type: 
  Country: None (occurrence: None)
  Receive Date: 20110531
  Receipt Date: 20101228
  Transmission Date: 20111010
  Serious: Yes (Hospitalization, Other)
  Sender: FDA-Public Use
  Company Number: US-BAYER-201037557NA

PATIENT
  Age: 40 Year
  Sex: Female
  Weight: 61.224 kg

DRUGS (3)
  1. DROSPIRENONE AND ETHINYL ESTRADIOL [Suspect]
     Indication: ACNE
  2. YASMIN [Suspect]
     Indication: DYSFUNCTIONAL UTERINE BLEEDING
     Dosage: UNK
     Dates: start: 20060902, end: 20061114
  3. YAZ [Suspect]
     Indication: ACNE
     Dosage: UNK
     Dates: start: 20060717, end: 20060901

REACTIONS (2)
  - GASTRITIS EROSIVE [None]
  - PORTAL VEIN THROMBOSIS [None]
